FAERS Safety Report 6009072-4 (Version None)
Quarter: 2008Q4

REPORT INFORMATION
  Report Type: 
  Country: None (occurrence: None)
  Receive Date: 20081216
  Receipt Date: 20081203
  Transmission Date: 20090506
  Serious: Yes (Hospitalization, Other)
  Sender: FDA-Public Use
  Company Number: 230772K07USA

PATIENT
  Age: 45 Year
  Sex: Female
  Weight: 97 kg

DRUGS (12)
  1. REBIF [Suspect]
     Indication: MULTIPLE SCLEROSIS
     Dosage: 8.8 MCG, 3 IN 1 WEEKS, SUBCUTANEOUS, 44 MCG, 3 IN 1 WEEKS, SUBCUTANEOUS, 22 MCG, 3 IN 1 WEEKS, SUBCU
     Route: 058
     Dates: start: 20070118, end: 20070101
  2. REBIF [Suspect]
     Indication: MULTIPLE SCLEROSIS
     Dosage: 8.8 MCG, 3 IN 1 WEEKS, SUBCUTANEOUS, 44 MCG, 3 IN 1 WEEKS, SUBCUTANEOUS, 22 MCG, 3 IN 1 WEEKS, SUBCU
     Route: 058
     Dates: start: 20070101, end: 20080101
  3. REBIF [Suspect]
     Indication: MULTIPLE SCLEROSIS
     Dosage: 8.8 MCG, 3 IN 1 WEEKS, SUBCUTANEOUS, 44 MCG, 3 IN 1 WEEKS, SUBCUTANEOUS, 22 MCG, 3 IN 1 WEEKS, SUBCU
     Route: 058
     Dates: start: 20080101, end: 20080101
  4. REBIF [Suspect]
     Indication: MULTIPLE SCLEROSIS
     Dosage: 8.8 MCG, 3 IN 1 WEEKS, SUBCUTANEOUS, 44 MCG, 3 IN 1 WEEKS, SUBCUTANEOUS, 22 MCG, 3 IN 1 WEEKS, SUBCU
     Route: 058
     Dates: start: 20080101
  5. TYLENOL (COTYLENOL) [Concomitant]
  6. MOTRIN [Concomitant]
  7. LOPRESSOR [Concomitant]
  8. KLONOPIN [Concomitant]
  9. FIBER (ALL OTHER NON-THERAPEUTIC PRODUCTS) [Concomitant]
  10. MULTI-VITAMIN (ALL OTHER NON-THERAPEUTIC PRODUCTS) [Concomitant]
  11. NASONEX [Concomitant]
  12. BENADRYL [Concomitant]

REACTIONS (4)
  - ANAEMIA [None]
  - DIVERTICULITIS [None]
  - DIVERTICULUM [None]
  - INCISION SITE COMPLICATION [None]
